FAERS Safety Report 24558511 (Version 3)
Quarter: 2024Q4

REPORT INFORMATION
  Report Type: Report from Study
  Country: JP (occurrence: JP)
  Receive Date: 20241029
  Receipt Date: 20241129
  Transmission Date: 20250114
  Serious: Yes (Hospitalization)
  Sender: NOVARTIS
  Company Number: JP-002147023-NVSJ2024JP012566

PATIENT
  Age: 58 Year
  Sex: Male
  Weight: 66.3 kg

DRUGS (8)
  1. TABRECTA [Suspect]
     Active Substance: CAPMATINIB
     Indication: Astrocytoma
     Dosage: 400 MG, BID
     Route: 048
     Dates: start: 20241008, end: 20241021
  2. WARFARIN [Suspect]
     Active Substance: WARFARIN
     Indication: Anticoagulant therapy
     Dosage: 5 MG
     Route: 065
     Dates: start: 2017, end: 20241022
  3. WARFARIN [Suspect]
     Active Substance: WARFARIN
     Dosage: 5 MG
     Route: 065
     Dates: start: 20241023
  4. WARFARIN [Suspect]
     Active Substance: WARFARIN
     Dosage: 5.25 MG
     Route: 065
     Dates: start: 20241031
  5. WARFARIN [Suspect]
     Active Substance: WARFARIN
     Dosage: 5 MG
     Route: 065
     Dates: start: 20241105
  6. LEVETIRACETAM [Concomitant]
     Active Substance: LEVETIRACETAM
     Indication: Product used for unknown indication
     Dosage: UNK
     Route: 065
  7. ATORVASTATIN [Concomitant]
     Active Substance: ATORVASTATIN
     Indication: Product used for unknown indication
     Dosage: UNK
     Route: 065
  8. FEBUXOSTAT [Concomitant]
     Active Substance: FEBUXOSTAT
     Indication: Product used for unknown indication
     Dosage: UNK
     Route: 065

REACTIONS (1)
  - International normalised ratio increased [Recovered/Resolved]

NARRATIVE: CASE EVENT DATE: 20241022
